FAERS Safety Report 10637381 (Version 1)
Quarter: 2014Q4

REPORT INFORMATION
  Report Type: Spontaneous
  Country: US (occurrence: None)
  Receive Date: 20141204
  Receipt Date: 20141204
  Transmission Date: 20150529
  Serious: Yes (Hospitalization, Disabling)
  Sender: FDA-Public Use
  Company Number: None

PATIENT
  Age: 27 Year
  Sex: Female
  Weight: 49.44 kg

DRUGS (1)
  1. LUPRON DEPOT [Suspect]
     Active Substance: LEUPROLIDE ACETATE
     Indication: ENDOMETRIOSIS
     Dosage: MONTHLY INJECTION

REACTIONS (13)
  - Palpitations [None]
  - Job dissatisfaction [None]
  - Overdose [None]
  - Thinking abnormal [None]
  - Eating disorder [None]
  - Feeling abnormal [None]
  - Asthenia [None]
  - Dysphagia [None]
  - Amnesia [None]
  - Hearing impaired [None]
  - Visual impairment [None]
  - Weight decreased [None]
  - Suicide attempt [None]

NARRATIVE: CASE EVENT DATE: 20141022
